FAERS Safety Report 22785132 (Version 3)
Quarter: 2024Q2

REPORT INFORMATION
  Report Type: Spontaneous
  Country: IT (occurrence: None)
  Receive Date: 20230804
  Receipt Date: 20240531
  Transmission Date: 20240715
  Serious: Yes (Hospitalization)
  Sender: FDA-Public Use
  Company Number: None

PATIENT
  Age: 43 Year
  Sex: Female

DRUGS (2)
  1. OCREVUS [Suspect]
     Active Substance: OCRELIZUMAB
     Indication: Relapsing-remitting multiple sclerosis
     Dosage: OCRELIZUMAB 600 MG ONE DRIP EVERY 6 MONTHS?CONCENTRATE FOR SOLUTION FOR INFUSION?MOST RECENT DOSE OF
     Route: 042
     Dates: start: 202006
  2. OCREVUS [Suspect]
     Active Substance: OCRELIZUMAB
     Route: 042
     Dates: start: 20230208

REACTIONS (2)
  - Pneumonitis [Recovered/Resolved]
  - Pneumonia [Unknown]

NARRATIVE: CASE EVENT DATE: 20230209
